FAERS Safety Report 25798045 (Version 1)
Quarter: 2025Q3

REPORT INFORMATION
  Report Type: Spontaneous
  Country: US (occurrence: US)
  Receive Date: 20250912
  Receipt Date: 20250912
  Transmission Date: 20251020
  Serious: Yes (Other)
  Sender: AMGEN
  Company Number: US-AMGEN-USASP2025180041

PATIENT
  Sex: Female

DRUGS (3)
  1. PREDNISONE [Suspect]
     Active Substance: PREDNISONE
     Indication: Hypoglycaemia
     Route: 065
  2. PREDNISONE [Suspect]
     Active Substance: PREDNISONE
     Route: 065
  3. DIAZOXIDE [Concomitant]
     Active Substance: DIAZOXIDE
     Indication: Hypoglycaemia
     Dosage: 200 MILLIGRAM, TID
     Route: 065

REACTIONS (5)
  - Sepsis [Unknown]
  - Liver abscess [Unknown]
  - Drug effective for unapproved indication [Unknown]
  - Hypoglycaemia [Recovered/Resolved]
  - Off label use [Unknown]
